FAERS Safety Report 24255345 (Version 2)
Quarter: 2024Q3

REPORT INFORMATION
  Report Type: Report from Study
  Country: US (occurrence: US)
  Receive Date: 20240827
  Receipt Date: 20240926
  Transmission Date: 20241017
  Serious: No
  Sender: SANDOZ
  Company Number: US-002147023-NVSC2020US264734

PATIENT
  Age: 59 Year
  Sex: Female

DRUGS (2)
  1. GLATOPA [Suspect]
     Active Substance: GLATIRAMER ACETATE
     Indication: Multiple sclerosis
     Dosage: 20 MG, ONCE2SDO (TWICE A DAY)
     Route: 058
     Dates: start: 20200928
  2. GLATOPA [Suspect]
     Active Substance: GLATIRAMER ACETATE
     Dosage: 40 MG, TIW
     Route: 065

REACTIONS (7)
  - Crying [Unknown]
  - Burning sensation [Unknown]
  - Pain [Unknown]
  - Lipoatrophy [Unknown]
  - Contusion [Recovered/Resolved]
  - Injection site mass [Unknown]
  - Injection site pain [Not Recovered/Not Resolved]

NARRATIVE: CASE EVENT DATE: 20200928
